FAERS Safety Report 17711355 (Version 1)
Quarter: 2020Q2

REPORT INFORMATION
  Report Type: Spontaneous
  Country: US (occurrence: US)
  Receive Date: 20200424
  Receipt Date: 20200424
  Transmission Date: 20200714
  Serious: No
  Sender: FDA-Public Use
  Company Number: None

PATIENT
  Age: 71 Year
  Sex: Female
  Weight: 71.73 kg

DRUGS (22)
  1. MENOPAUSE FORMULA [Concomitant]
     Active Substance: HOMEOPATHICS
  2. CAPECITABINE. [Suspect]
     Active Substance: CAPECITABINE
     Indication: COLON CANCER
     Route: 048
     Dates: start: 20200413
  3. ALOE VERA [Concomitant]
     Active Substance: ALOE VERA LEAF
  4. HYALURONIC ACID [Concomitant]
     Active Substance: HYALURONIC ACID
  5. METAMUCIL [Concomitant]
     Active Substance: PLANTAGO SEED
  6. DON QUAI [Concomitant]
  7. DILTIAZEM. [Concomitant]
     Active Substance: DILTIAZEM
  8. ENZYME DIGEST [Concomitant]
  9. ESCITALOPRAM [Concomitant]
     Active Substance: ESCITALOPRAM OXALATE
  10. ACYCLOVIR. [Concomitant]
     Active Substance: ACYCLOVIR
  11. BLACK COHOSH [Concomitant]
     Active Substance: BLACK COHOSH
  12. CALCIUM + D3 [Concomitant]
     Active Substance: CALCIUM\CHOLECALCIFEROL
  13. CAYENNE [Concomitant]
     Active Substance: CAPSICUM\HERBALS
  14. FAMOTIDINE. [Concomitant]
     Active Substance: FAMOTIDINE
  15. L-LYSINE [Concomitant]
     Active Substance: LYSINE
  16. CRANBERRY. [Concomitant]
     Active Substance: CRANBERRY
  17. GINGER ROOT [Concomitant]
     Active Substance: GINGER
  18. GINKGO BILOBA EXTRACT [Concomitant]
     Active Substance: GINKGO
  19. GLUCOSAMINE CHONDROITON [Concomitant]
  20. LUTEIN [Concomitant]
     Active Substance: LUTEIN
  21. MAGNESIUM OXIDE. [Concomitant]
     Active Substance: MAGNESIUM OXIDE
  22. LEVOTHYROXINE. [Concomitant]
     Active Substance: LEVOTHYROXINE

REACTIONS (1)
  - Diverticulitis [None]

NARRATIVE: CASE EVENT DATE: 20200424
